FAERS Safety Report 8795765 (Version 3)
Quarter: 2012Q4

REPORT INFORMATION
  Report Type: 
  Country: US (occurrence: US)
  Receive Date: 20120919
  Receipt Date: 20121119
  Transmission Date: 20130627
  Serious: Yes (Hospitalization)
  Sender: FDA-Public Use
  Company Number: US-B.I. PHARMACEUTICALS,INC./RIDGEFIELD-2012-BP-22727BP

PATIENT
  Age: 70 None
  Sex: Male
  Weight: 79.38 kg

DRUGS (5)
  1. SPIRIVA [Suspect]
     Indication: CHRONIC OBSTRUCTIVE PULMONARY DISEASE
     Dosage: 18 mcg
     Route: 055
     Dates: start: 2010
  2. THEOPHYLLINE [Concomitant]
     Dosage: 800 mg
     Dates: start: 2010
  3. MUCINEX [Concomitant]
     Dosage: 1200 mg
     Dates: start: 2010
  4. AZITHROMYCIN [Concomitant]
     Dates: start: 201207
  5. PREDNISONE [Concomitant]

REACTIONS (7)
  - Dyspnoea [Unknown]
  - Dyspnoea [Unknown]
  - Dyspnoea [Unknown]
  - Drug ineffective [Unknown]
  - Chest discomfort [Unknown]
  - Product quality issue [Unknown]
  - Product quality issue [Unknown]
